FAERS Safety Report 6490853-8 (Version None)
Quarter: 2009Q4

REPORT INFORMATION
  Report Type: 
  Country: None (occurrence: None)
  Receive Date: 20091211
  Receipt Date: 20091204
  Transmission Date: 20100525
  Serious: Yes (Other)
  Sender: FDA-Public Use
  Company Number: US-JNJFOC-20091202573

PATIENT
  Sex: Male

DRUGS (5)
  1. RISPERDAL [Suspect]
     Route: 048
  2. RISPERDAL [Suspect]
     Indication: MAJOR DEPRESSION
     Route: 048
  3. EFFEXOR [Suspect]
     Route: 048
  4. EFFEXOR [Suspect]
     Indication: DRUG USE FOR UNKNOWN INDICATION
     Route: 048
  5. TEGRETOL [Concomitant]
     Route: 065

REACTIONS (3)
  - BIPOLAR I DISORDER [None]
  - DYSTONIA [None]
  - SEDATION [None]
